FAERS Safety Report 9625148 (Version 1)
Quarter: 2013Q4

REPORT INFORMATION
  Report Type: Spontaneous
  Country: US (occurrence: US)
  Receive Date: 20131016
  Receipt Date: 20131016
  Transmission Date: 20140711
  Serious: No
  Sender: FDA-Public Use
  Company Number: US-009507513-1310USA005458

PATIENT
  Sex: Female
  Weight: 79.37 kg

DRUGS (1)
  1. MIRALAX [Suspect]
     Indication: BOWEL MOVEMENT IRREGULARITY
     Dosage: UNK, QOD
     Route: 048
     Dates: start: 2010

REACTIONS (1)
  - Inappropriate schedule of drug administration [Unknown]
